FAERS Safety Report 10544527 (Version 1)
Quarter: 2014Q4

REPORT INFORMATION
  Report Type: Report from Study
  Country: BR (occurrence: BR)
  Receive Date: 20141027
  Receipt Date: 20141027
  Transmission Date: 20150529
  Serious: Yes (Other)
  Sender: FDA-Public Use
  Company Number: BR-BAXTER-2014BAX064375

PATIENT

DRUGS (8)
  1. CLORETO DE S?DIO - BAXTER [Suspect]
     Active Substance: SODIUM CHLORIDE
     Indication: PRODUCT USED FOR UNKNOWN INDICATION
     Dosage: 1 ML/KG/HR
     Route: 042
  2. IOXITALAMATE [Suspect]
     Active Substance: IOTHALAMIC ACID
     Indication: ARTERIOGRAM CORONARY
     Route: 065
  3. DEXTROSE. [Suspect]
     Active Substance: DEXTROSE
     Dosage: 1.18 ML/KG/HR
     Route: 040
  4. N-ACETYLCYSTEINE [Suspect]
     Active Substance: ACETYLCYSTEINE
     Indication: ARTERIOGRAM CORONARY
     Route: 042
  5. DEXTROSE. [Suspect]
     Active Substance: DEXTROSE
     Indication: ARTERIOGRAM CORONARY
     Dosage: 3.5 ML/KG/HR
     Route: 040
  6. DEXTROSE. [Suspect]
     Active Substance: DEXTROSE
     Route: 040
  7. N-ACETYLCYSTEINE [Suspect]
     Active Substance: ACETYLCYSTEINE
     Route: 042
  8. SODIUM BICARBONATE. [Suspect]
     Active Substance: SODIUM BICARBONATE
     Indication: ARTERIOGRAM CORONARY
     Dosage: 150 MEQ
     Route: 042

REACTIONS (1)
  - Acute kidney injury [Recovered/Resolved]
